FAERS Safety Report 25761082 (Version 4)
Quarter: 2025Q4

REPORT INFORMATION
  Report Type: Report from Study
  Country: AR (occurrence: AR)
  Receive Date: 20250904
  Receipt Date: 20251024
  Transmission Date: 20260117
  Serious: Yes (Other)
  Sender: NOVARTIS
  Company Number: AR-002147023-NVSC2025AR128163

PATIENT
  Age: 69 Year
  Sex: Female

DRUGS (8)
  1. KISQALI [Suspect]
     Active Substance: RIBOCICLIB SUCCINATE
     Indication: Breast cancer metastatic
     Dosage: 600 MG, QD (600 MG, 200 MG X 3), 3 TABLETS
     Route: 048
     Dates: start: 20250722
  2. KISQALI [Suspect]
     Active Substance: RIBOCICLIB SUCCINATE
     Dosage: 400 MG, QD (2 TABLETS)
     Route: 065
     Dates: start: 20250826
  3. FEMARA [Suspect]
     Active Substance: LETROZOLE
     Indication: Breast cancer metastatic
     Dosage: 2.5 MG, QD (ONE TABLET)
     Route: 048
     Dates: start: 20250722, end: 20250822
  4. FULVESTRANT [Suspect]
     Active Substance: FULVESTRANT
     Indication: Breast cancer metastatic
     Dosage: 500 MG, QMO
     Route: 030
     Dates: start: 20250722
  5. FULVESTRANT [Suspect]
     Active Substance: FULVESTRANT
     Dosage: UNK (INJECTION BUTTOCK)
     Route: 030
     Dates: start: 20250830
  6. FULVESTRANT [Suspect]
     Active Substance: FULVESTRANT
     Dosage: UNK (INJECTION BUTTOCK)
     Route: 030
     Dates: start: 20250930
  7. AMLODIPINE [Concomitant]
     Active Substance: AMLODIPINE BESYLATE
     Indication: Hypertension
     Dosage: 5 MG
     Route: 065
  8. CLONAZEPAM [Concomitant]
     Active Substance: CLONAZEPAM
     Indication: Sleep disorder
     Dosage: UNK, QHS (ALMOST EVERY NIGHT)
     Route: 065

REACTIONS (20)
  - Decreased immune responsiveness [Unknown]
  - Feeling abnormal [Unknown]
  - Pain [Recovered/Resolved]
  - Muscle spasms [Unknown]
  - Herpes virus infection [Recovered/Resolved]
  - Platelet count decreased [Unknown]
  - Epistaxis [Recovered/Resolved]
  - Fatigue [Not Recovered/Not Resolved]
  - White blood cell count decreased [Unknown]
  - Pruritus [Recovered/Resolved]
  - Drug intolerance [Unknown]
  - Alopecia [Not Recovered/Not Resolved]
  - Scab [Recovered/Resolved]
  - Dermatitis allergic [Recovered/Resolved]
  - Eye irritation [Recovered/Resolved]
  - Hypersomnia [Unknown]
  - Nausea [Unknown]
  - Blister [Unknown]
  - Epistaxis [Unknown]
  - Inappropriate schedule of product administration [Unknown]

NARRATIVE: CASE EVENT DATE: 20250722
